FAERS Safety Report 4476737-5 (Version None)
Quarter: 2004Q4

REPORT INFORMATION
  Report Type: 
  Country: None (occurrence: None)
  Receive Date: 20041015
  Receipt Date: 20041015
  Transmission Date: 20050328
  Serious: Yes (Life-Threatening, Hospitalization)
  Sender: FDA-Public Use
  Company Number: None

PATIENT
  Age: 31 Year
  Sex: Female
  Weight: 50.8029 kg

DRUGS (1)
  1. OMNICEF [Suspect]
     Indication: SINUSITIS
     Dosage: 2X/DAY   ORAL
     Route: 048
     Dates: start: 20031218, end: 20041228

REACTIONS (10)
  - BLISTER [None]
  - CLOSTRIDIUM COLITIS [None]
  - DYSPEPSIA [None]
  - GAIT DISTURBANCE [None]
  - IMMUNE SYSTEM DISORDER [None]
  - INTESTINAL FUNCTIONAL DISORDER [None]
  - PAIN [None]
  - PANCREATIC DISORDER [None]
  - THROMBOSIS [None]
  - X-RAY ABNORMAL [None]
